FAERS Safety Report 24937947 (Version 2)
Quarter: 2025Q1

REPORT INFORMATION
  Report Type: Spontaneous
  Country: BR (occurrence: BR)
  Receive Date: 20250206
  Receipt Date: 20250311
  Transmission Date: 20250409
  Serious: Yes (Other)
  Sender: BAYER HEALTHCARE PHARMACEUTICALS INC.
  Company Number: BR-BAYER-2025A012755

PATIENT
  Age: 30 Year
  Sex: Female

DRUGS (2)
  1. KYLEENA [Suspect]
     Active Substance: LEVONORGESTREL
     Indication: Contraception
     Dosage: 17.5?G/DAY
     Route: 015
     Dates: start: 20230116, end: 20240911
  2. LAMOTRIGINE [Concomitant]
     Active Substance: LAMOTRIGINE
     Indication: Depression
     Dosage: 150 MG, QD
     Route: 048
     Dates: start: 202008

REACTIONS (5)
  - Pregnancy with contraceptive device [Recovered/Resolved with Sequelae]
  - Subchorionic haematoma [Recovered/Resolved]
  - Abortion spontaneous [Recovered/Resolved]
  - Varicose veins pelvic [Recovered/Resolved]
  - Drug ineffective [None]

NARRATIVE: CASE EVENT DATE: 20240701
